FAERS Safety Report 16981983 (Version 1)
Quarter: 2019Q4

REPORT INFORMATION
  Report Type: Spontaneous
  Country: US (occurrence: US)
  Receive Date: 20191101
  Receipt Date: 20191101
  Transmission Date: 20200122
  Serious: Yes (Other)
  Sender: FDA-Public Use
  Company Number: US-TEVA-2019-US-1131390

PATIENT
  Age: 26 Year
  Sex: Female
  Weight: 65 kg

DRUGS (3)
  1. AJOVY [Suspect]
     Active Substance: FREMANEZUMAB-VFRM
     Route: 065
  2. WELLBUTRIN [Suspect]
     Active Substance: BUPROPION HYDROCHLORIDE
     Route: 065
  3. NEXPLANON [Suspect]
     Active Substance: ETONOGESTREL
     Route: 065

REACTIONS (7)
  - Pharyngeal swelling [Not Recovered/Not Resolved]
  - Oropharyngeal discolouration [Recovering/Resolving]
  - Pharyngitis [Not Recovered/Not Resolved]
  - Autoimmune disorder [Unknown]
  - Hypersensitivity [Unknown]
  - Gastrooesophageal reflux disease [Not Recovered/Not Resolved]
  - Oropharyngeal pain [Recovering/Resolving]

NARRATIVE: CASE EVENT DATE: 2017
